FAERS Safety Report 8789224 (Version 1)
Quarter: 2012Q4

REPORT INFORMATION
  Report Type: Spontaneous
  Country: US (occurrence: None)
  Receive Date: 20120910
  Receipt Date: 20120910
  Transmission Date: 20130627
  Serious: Yes (Other)
  Sender: FDA-Public Use
  Company Number: None

PATIENT
  Age: 60 Year
  Sex: Male
  Weight: 124.74 kg

DRUGS (1)
  1. SIMVASTATIN [Suspect]
     Indication: HIGH CHOLESTEROL
     Dosage: 20 mg per day once perday po
     Route: 048
     Dates: start: 19960601, end: 20120815

REACTIONS (3)
  - Pain [None]
  - Arthralgia [None]
  - Myalgia [None]
